FAERS Safety Report 15497367 (Version 1)
Quarter: 2018Q4

REPORT INFORMATION
  Report Type: Spontaneous
  Country: US (occurrence: US)
  Receive Date: 20181013
  Receipt Date: 20181013
  Transmission Date: 20190205
  Serious: No
  Sender: FDA-Public Use
  Company Number: None

PATIENT
  Age: 51 Year
  Sex: Female
  Weight: 51.75 kg

DRUGS (2)
  1. NASACORT [Suspect]
     Active Substance: TRIAMCINOLONE ACETONIDE
     Indication: UPPER-AIRWAY COUGH SYNDROME
     Dosage: ?          OTHER STRENGTH:MCG;QUANTITY:2 SPRAY(S);OTHER ROUTE:BY THE NOSE?
     Dates: start: 20181004, end: 20181006
  2. LUVOX [Concomitant]
     Active Substance: FLUVOXAMINE MALEATE

REACTIONS (5)
  - Anxiety [None]
  - Palpitations [None]
  - Dissociation [None]
  - Insomnia [None]
  - Irritability [None]

NARRATIVE: CASE EVENT DATE: 20181005
